FAERS Safety Report 12757091 (Version 1)
Quarter: 2016Q3

REPORT INFORMATION
  Report Type: Spontaneous
  Country: NO (occurrence: NO)
  Receive Date: 20160918
  Receipt Date: 20160918
  Transmission Date: 20161109
  Serious: Yes (Disabling, Other)
  Sender: FDA-Public Use
  Company Number: NO-TEVA-693929ISR

PATIENT
  Sex: Female

DRUGS (1)
  1. METHOTREXATE (METHOTREXATE SODIUM) [Suspect]
     Active Substance: METHOTREXATE SODIUM
     Dosage: DOSE CHANGES BASED ON THE SONS BLOOD VALUES
     Dates: start: 201402

REACTIONS (12)
  - T-lymphocyte count decreased [Unknown]
  - Immune system disorder [Unknown]
  - Deafness unilateral [Unknown]
  - Headache [Unknown]
  - Bone marrow failure [Unknown]
  - Syncope [Unknown]
  - Occupational exposure to product [Unknown]
  - Fatigue [Unknown]
  - Feeling abnormal [Unknown]
  - Natural killer cell count decreased [Unknown]
  - Vaginal haemorrhage [Recovered/Resolved]
  - Alopecia [Unknown]

NARRATIVE: CASE EVENT DATE: 201402
